FAERS Safety Report 8681262 (Version 2)
Quarter: 2013Q4

REPORT INFORMATION
  Report Type: Report from Study
  Country: US (occurrence: US)
  Receive Date: 20120725
  Receipt Date: 20131101
  Transmission Date: 20140711
  Serious: Yes (Other)
  Sender: FDA-Public Use
  Company Number: US-MSD-1207USA008482

PATIENT
  Sex: Female
  Weight: 120.64 kg

DRUGS (3)
  1. PEGINTRON [Suspect]
     Indication: HEPATITIS C
     Dosage: UNK
     Dates: start: 20110819, end: 20120713
  2. REBETOL [Suspect]
     Indication: HEPATITIS C
     Dosage: UNK
     Dates: start: 20110819
  3. VICTRELIS [Suspect]
     Indication: HEPATITIS C
     Dosage: UNK
     Dates: start: 20110819

REACTIONS (5)
  - Weight decreased [Unknown]
  - Anaemia [Unknown]
  - Dysgeusia [Unknown]
  - Early satiety [Unknown]
  - Dry mouth [Unknown]
